FAERS Safety Report 21126794 (Version 1)
Quarter: 2022Q3

REPORT INFORMATION
  Report Type: Spontaneous
  Country: FR (occurrence: FR)
  Receive Date: 20220725
  Receipt Date: 20220725
  Transmission Date: 20221027
  Serious: Yes (Other)
  Sender: FDA-Public Use
  Company Number: FR-ALKEM LABORATORIES LIMITED-FR-ALKEM-2022-06264

PATIENT
  Age: 27 Year
  Sex: Male

DRUGS (15)
  1. LACOSAMIDE [Suspect]
     Active Substance: LACOSAMIDE
     Indication: Tonic convulsion
     Dosage: 50 MILLIGRAM PER DAY
     Route: 065
  2. LACOSAMIDE [Suspect]
     Active Substance: LACOSAMIDE
     Indication: Petit mal epilepsy
     Dosage: 100 MILLIGRAM PER DAY
     Route: 065
  3. LACOSAMIDE [Suspect]
     Active Substance: LACOSAMIDE
     Indication: Atonic seizures
  4. LAMOTRIGINE [Suspect]
     Active Substance: LAMOTRIGINE
     Indication: Tonic convulsion
     Dosage: 200 MILLIGRAM PER DAY
     Route: 065
  5. LAMOTRIGINE [Suspect]
     Active Substance: LAMOTRIGINE
     Indication: Petit mal epilepsy
  6. LAMOTRIGINE [Suspect]
     Active Substance: LAMOTRIGINE
     Indication: Atonic seizures
  7. VALPROATE [Suspect]
     Active Substance: VALPROIC ACID
     Indication: Tonic convulsion
     Dosage: 750 MILLIGRAM PER DAY
     Route: 065
  8. VALPROATE [Suspect]
     Active Substance: VALPROIC ACID
     Indication: Petit mal epilepsy
  9. VALPROATE [Suspect]
     Active Substance: VALPROIC ACID
     Indication: Atonic seizures
  10. FELBAMATE [Suspect]
     Active Substance: FELBAMATE
     Indication: Tonic convulsion
     Dosage: 1600 MILLIGRAM PER DAY
     Route: 065
  11. FELBAMATE [Suspect]
     Active Substance: FELBAMATE
     Indication: Petit mal epilepsy
  12. FELBAMATE [Suspect]
     Active Substance: FELBAMATE
     Indication: Atonic seizures
  13. NITRAZEPAM [Suspect]
     Active Substance: NITRAZEPAM
     Indication: Tonic convulsion
     Dosage: 25 MILLIGRAM PER DAY
     Route: 065
  14. NITRAZEPAM [Suspect]
     Active Substance: NITRAZEPAM
     Indication: Petit mal epilepsy
  15. NITRAZEPAM [Suspect]
     Active Substance: NITRAZEPAM
     Indication: Atonic seizures

REACTIONS (4)
  - Seizure [Recovered/Resolved]
  - Drug ineffective [Unknown]
  - Somnolence [Recovered/Resolved]
  - Vomiting [Recovered/Resolved]
